FAERS Safety Report 8786338 (Version 1)
Quarter: 2012Q4

REPORT INFORMATION
  Report Type: 
  Country: US (occurrence: US)
  Receive Date: 20120914
  Receipt Date: 20120914
  Transmission Date: 20130627
  Serious: No
  Sender: FDA-Public Use
  Company Number: US-ASTRAZENECA-2012SE65902

PATIENT
  Age: 48 Year
  Sex: Male
  Weight: 81.6 kg

DRUGS (14)
  1. SEROQUEL XR [Suspect]
     Indication: MAJOR DEPRESSION
     Route: 048
     Dates: start: 2012
  2. SEROQUEL XR [Suspect]
     Indication: BIPOLAR DISORDER
     Route: 048
     Dates: start: 2012
  3. SEROQUEL XR [Suspect]
     Indication: INSOMNIA
     Route: 048
     Dates: start: 2012
  4. SEROQUEL XR [Suspect]
     Indication: MAJOR DEPRESSION
     Route: 048
     Dates: start: 2012
  5. SEROQUEL XR [Suspect]
     Indication: BIPOLAR DISORDER
     Route: 048
     Dates: start: 2012
  6. SEROQUEL XR [Suspect]
     Indication: INSOMNIA
     Route: 048
     Dates: start: 2012
  7. VOLTAREN [Concomitant]
     Indication: ANTIINFLAMMATORY THERAPY
     Route: 048
  8. GABAPENTIN [Concomitant]
     Indication: ARTHRALGIA
     Route: 048
  9. NORCO [Concomitant]
     Indication: PAIN
     Dosage: 10/325 MGS PRN
     Route: 048
  10. FLUTICASONE [Concomitant]
     Indication: MULTIPLE ALLERGIES
     Dosage: TWO SPRAYS PRN
     Route: 045
  11. COMPAZINE [Concomitant]
     Indication: NAUSEA
     Dosage: PRN
     Route: 048
  12. DIAZEPAM [Concomitant]
     Indication: MUSCLE SPASMS
     Dosage: 75 MGS PRN BID
     Route: 048
  13. XANAX [Concomitant]
     Indication: ANXIETY
     Dosage: 1 MGS PRN
     Route: 048
  14. XANAX [Concomitant]
     Indication: TACHYPHRENIA
     Dosage: 1 MGS PRN
     Route: 048

REACTIONS (9)
  - Mood swings [Not Recovered/Not Resolved]
  - Anxiety [Not Recovered/Not Resolved]
  - Insomnia [Not Recovered/Not Resolved]
  - Tachyphrenia [Not Recovered/Not Resolved]
  - Malaise [Not Recovered/Not Resolved]
  - Hypoaesthesia [Unknown]
  - Joint injury [Unknown]
  - Drug ineffective [Unknown]
  - Weight increased [Unknown]
